FAERS Safety Report 13248073 (Version 1)
Quarter: 2017Q1

REPORT INFORMATION
  Report Type: Spontaneous
  Country: DK (occurrence: DK)
  Receive Date: 20170217
  Receipt Date: 20170217
  Transmission Date: 20170428
  Serious: Yes (Hospitalization)
  Sender: FDA-Public Use
  Company Number: DK-MYLANLABS-2017M1009149

PATIENT

DRUGS (16)
  1. VIMPAT [Suspect]
     Active Substance: LACOSAMIDE
     Indication: EPILEPSY
     Dates: start: 20130201
  2. MELATONIN [Concomitant]
     Active Substance: MELATONIN
     Indication: MIDDLE INSOMNIA
     Dates: start: 1998
  3. SABRILEX [Suspect]
     Active Substance: VIGABATRIN
     Indication: EPILEPSY
     Dates: start: 19960617
  4. KEPPRA [Suspect]
     Active Substance: LEVETIRACETAM
     Indication: EPILEPSY
     Dosage: UNK
  5. TOPIMAX                            /01201701/ [Suspect]
     Active Substance: TOPIRAMATE
     Indication: EPILEPSY
  6. GABAPENTIN. [Suspect]
     Active Substance: GABAPENTIN
     Indication: EPILEPSY
     Dates: start: 19960731
  7. ZEBINIX [Suspect]
     Active Substance: ESLICARBAZEPINE ACETATE
     Indication: EPILEPSY
     Dates: start: 201206
  8. APYDAN                             /00596701/ [Suspect]
     Active Substance: OXCARBAZEPINE
     Indication: EPILEPSY
     Dates: start: 200009
  9. TRILEPTAL [Suspect]
     Active Substance: OXCARBAZEPINE
     Indication: EPILEPSY
     Dates: start: 19960711
  10. STESOLID [Concomitant]
     Active Substance: DIAZEPAM
     Indication: EPILEPSY
  11. INOVELON [Suspect]
     Active Substance: RUFINAMIDE
     Indication: EPILEPSY
     Dates: start: 201112
  12. FENEMAL [Suspect]
     Active Substance: PHENOBARBITAL
     Indication: EPILEPSY
     Dates: start: 19960528
  13. DEPRAKINE                          /00228501/ [Suspect]
     Active Substance: VALPROATE SODIUM
     Indication: EPILEPSY
     Dates: start: 1996
  14. FRISIUM [Suspect]
     Active Substance: CLOBAZAM
     Indication: EPILEPSY
     Dates: start: 199904
  15. LAMICTAL [Suspect]
     Active Substance: LAMOTRIGINE
     Indication: EPILEPSY
     Dates: start: 200203
  16. LYRICA [Suspect]
     Active Substance: PREGABALIN
     Indication: EPILEPSY
     Dates: start: 201306

REACTIONS (2)
  - Upper limb fracture [Unknown]
  - Osteoporosis [Unknown]

NARRATIVE: CASE EVENT DATE: 200409
